FAERS Safety Report 7744410-3 (Version None)
Quarter: 2011Q3

REPORT INFORMATION
  Report Type: 
  Country: None (occurrence: None)
  Receive Date: 20110825
  Receipt Date: 20110822
  Transmission Date: 20111222
  Serious: Yes (Life-Threatening, Hospitalization, Other)
  Sender: FDA-Public Use
  Company Number: 2011SP027132

PATIENT
  Age: 17 Year
  Sex: Male
  Weight: 48.5 kg

DRUGS (13)
  1. TEMODAL [Suspect]
     Indication: MALIGNANT GLIOMA
     Dosage: 75 MG/M2;QD;PO
     Route: 048
     Dates: start: 20110701
  2. TEMODAL [Suspect]
     Indication: MALIGNANT GLIOMA
     Dosage: 75 MG/M2;QD;PO
     Route: 048
     Dates: start: 20110420, end: 20110428
  3. UBRETID (DISTIGMINE BROMIDE) [Suspect]
     Indication: MALIGNANT GLIOMA
     Dosage: 5 MG;QD;PO
     Route: 048
     Dates: start: 20110423, end: 20110428
  4. MAGMITT (MAGNESIUM OXIDE) [Suspect]
     Indication: MALIGNANT GLIOMA
     Dosage: 330 MG;TID;PO
     Route: 048
     Dates: start: 20110404, end: 20110428
  5. MYONAL (EPERISONE HYDROCHLORIDE) [Suspect]
     Indication: MALIGNANT GLIOMA
     Dosage: 50 MG;TID;PO
     Route: 048
     Dates: start: 20110421, end: 20110428
  6. LOXONIN (LOXOPROFEN SODIUM HYDRATE) (LOXOPROFEN SODIUM) [Suspect]
     Indication: MALIGNANT GLIOMA
     Dosage: 60 MG;PRN;PO
     Route: 048
     Dates: start: 20110421, end: 20110428
  7. ZOLPIDEM TARTRATE [Suspect]
     Indication: MALIGNANT GLIOMA
     Dosage: 5 MG;QD;PO
     Route: 048
     Dates: start: 20110422, end: 20110428
  8. FENTANYL [Suspect]
     Indication: ANALGESIC THERAPY
     Dosage: IV
     Route: 042
     Dates: start: 20110502, end: 20110530
  9. FAMOTIDINE [Suspect]
     Indication: MALIGNANT GLIOMA
     Dosage: 10 MG;BID;PO
     Route: 048
     Dates: start: 20110409, end: 20110428
  10. PRIMPERAN TAB [Suspect]
     Indication: MALIGNANT GLIOMA
     Dosage: 10 MG;QD;IV
     Route: 042
     Dates: start: 20110420, end: 20110428
  11. BETAMETHASONE [Suspect]
     Indication: MALIGNANT GLIOMA
     Dosage: 2 MG;BID;PO
     Route: 048
     Dates: start: 20110413, end: 20110428
  12. CEFACLOR [Suspect]
     Indication: ANALGESIC THERAPY
     Dosage: IV
     Route: 042
     Dates: start: 20110502, end: 20110530
  13. MUCOSTA (REBAMIPIDE) [Suspect]
     Indication: MALIGNANT GLIOMA
     Dosage: 100 MG;PRN;PO
     Route: 048
     Dates: start: 20110421, end: 20110428

REACTIONS (6)
  - ERYTHEMA MULTIFORME [None]
  - HEPATIC FUNCTION ABNORMAL [None]
  - COAGULOPATHY [None]
  - APHTHOUS STOMATITIS [None]
  - PYREXIA [None]
  - TOXIC EPIDERMAL NECROLYSIS [None]
